FAERS Safety Report 4809168-6 (Version None)
Quarter: 2005Q4

REPORT INFORMATION
  Report Type: 
  Country: None (occurrence: None)
  Receive Date: 20051021
  Receipt Date: 20020521
  Transmission Date: 20060501
  Serious: No
  Sender: FDA-Public Use
  Company Number: US_020584741

PATIENT
  Age: 24 Year
  Sex: Male

DRUGS (4)
  1. ZYPREXA [Suspect]
     Indication: SCHIZOPHRENIA
     Dosage: 15MG/DAY
  2. VALERIN (VALPROATE SODIUM) [Concomitant]
  3. CHLORPROMAZINE HCL [Concomitant]
  4. RISPERDAL (RISPERDIDONE) [Concomitant]

REACTIONS (1)
  - INFECTION [None]
